FAERS Safety Report 14708038 (Version 1)
Quarter: 2018Q2

REPORT INFORMATION
  Report Type: Spontaneous
  Country: US (occurrence: US)
  Receive Date: 20180403
  Receipt Date: 20180403
  Transmission Date: 20180711
  Serious: No
  Sender: FDA-Public Use
  Company Number: US-PFIZER INC-2018134996

PATIENT
  Age: 50 Year
  Sex: Female
  Weight: 77 kg

DRUGS (4)
  1. HYDROCHLOROTHIAZIDE. [Concomitant]
     Active Substance: HYDROCHLOROTHIAZIDE
     Indication: HYPERTENSION
     Dosage: 25 MG, 1X/DAY, IN THE MORNING
     Route: 048
  2. GABAPENTIN. [Suspect]
     Active Substance: GABAPENTIN
     Indication: LUMBAR SPINAL STENOSIS
     Dosage: 1200 MG, 3X/DAY
     Route: 048
     Dates: end: 201610
  3. PREMPRO [Concomitant]
     Active Substance: ESTROGENS, CONJUGATED\MEDROXYPROGESTERONE ACETATE
     Indication: MENOPAUSE
     Dosage: ONE HALF TABLET DAILY 0.3MG-1.5MG TABLET, ONE HALF TABLET DAILY
     Route: 048
     Dates: start: 201712
  4. HYDROCODONE [Concomitant]
     Active Substance: HYDROCODONE
     Indication: LUMBAR SPINAL STENOSIS
     Dosage: 10-325MG , 4X/DAY
     Route: 048
     Dates: start: 201803

REACTIONS (1)
  - Drug ineffective for unapproved indication [Not Recovered/Not Resolved]
